FAERS Safety Report 7360612-2 (Version None)
Quarter: 2011Q1

REPORT INFORMATION
  Report Type: 
  Country: None (occurrence: None)
  Receive Date: 20110310
  Receipt Date: 20110228
  Transmission Date: 20110831
  Serious: Yes (Disabling, Other)
  Sender: FDA-Public Use
  Company Number: PHHO2004JP14983

PATIENT
  Age: 76 Year
  Sex: Male
  Weight: 143.3 kg

DRUGS (6)
  1. ZANTAC [Concomitant]
  2. VISUDYNE [Suspect]
     Indication: MACULAR DEGENERATION
     Dosage: 6 MG/ML ONCE IV
     Route: 042
     Dates: start: 20040629, end: 20040629
  3. ADONA [Concomitant]
  4. DOXAZOSIN MESYLATE [Concomitant]
  5. NORVASC [Concomitant]
  6. BLOPRESS [Concomitant]

REACTIONS (7)
  - EYE HAEMORRHAGE [None]
  - RETINAL SCAR [None]
  - RETINAL DETACHMENT [None]
  - MACULOPATHY [None]
  - CHEST DISCOMFORT [None]
  - BLOOD PRESSURE INCREASED [None]
  - RETINAL PIGMENT EPITHELIAL TEAR [None]
